FAERS Safety Report 10065011 (Version 1)
Quarter: 2014Q2

REPORT INFORMATION
  Report Type: Spontaneous
  Country: PT (occurrence: PT)
  Receive Date: 20140408
  Receipt Date: 20140408
  Transmission Date: 20141212
  Serious: Yes (Life-Threatening)
  Sender: FDA-Public Use
  Company Number: PT-ACTAVIS-2014-06474

PATIENT
  Age: 68 Year
  Sex: Male
  Weight: 85 kg

DRUGS (4)
  1. DOCETAXEL ACTAVIS [Suspect]
     Indication: PROSTATE CANCER
     Dosage: 145 MG, DAILY
     Route: 042
     Dates: start: 20140306, end: 20140306
  2. ONDANSETROM [Concomitant]
     Indication: ANTIEMETIC SUPPORTIVE CARE
     Dosage: 8 MG, DAILY
     Route: 042
     Dates: start: 20140306
  3. ONDANSETROM [Concomitant]
     Dosage: 16 MG, DAILY
     Route: 048
     Dates: start: 20140306, end: 20140311
  4. DEXAMETASONA                       /00016001/ [Concomitant]
     Indication: ADRENOCORTICAL STEROID THERAPY
     Dosage: 10 MG, DAILY
     Route: 042
     Dates: start: 20140306

REACTIONS (3)
  - Dyspnoea [Recovered/Resolved]
  - Cough [Recovered/Resolved]
  - Throat tightness [Recovered/Resolved]
